FAERS Safety Report 6998151-0 (Version None)
Quarter: 2010Q3

REPORT INFORMATION
  Report Type: 
  Country: None (occurrence: None)
  Receive Date: 20100920
  Receipt Date: 20100723
  Transmission Date: 20110219
  Serious: Yes (Hospitalization, Other)
  Sender: FDA-Public Use
  Company Number: US-ASTRAZENECA-2009UW17739

PATIENT
  Age: 14635 Day
  Sex: Female

DRUGS (8)
  1. SEROQUEL [Suspect]
     Route: 048
     Dates: start: 20000101
  2. SEROQUEL [Suspect]
     Dosage: 25 MG TK TWO TS PO HS
     Route: 048
     Dates: start: 20041101
  3. TRAZODONE HCL [Concomitant]
     Dosage: 150 MG TK UTD
     Dates: start: 20041110
  4. PROZAC [Concomitant]
     Dosage: 20 MG TK TWO CS PO QD
     Route: 048
     Dates: start: 20041101
  5. PROZAC [Concomitant]
     Route: 048
     Dates: start: 20081119
  6. KLONOPIN [Concomitant]
     Dosage: 2 MG ONE QHS AS NEEDED
     Dates: start: 20090827
  7. PRILOSEC [Concomitant]
     Dates: start: 20090827
  8. PREDNISONE [Concomitant]
     Dosage: TAPERED SLOWLY FROM 60 MG TWICE DAILY
     Dates: start: 20090101

REACTIONS (4)
  - DIABETES MELLITUS [None]
  - DIABETES MELLITUS INADEQUATE CONTROL [None]
  - PANCREATITIS [None]
  - TYPE 1 DIABETES MELLITUS [None]
